FAERS Safety Report 8552358-X (Version None)
Quarter: 2012Q3

REPORT INFORMATION
  Report Type: 
  Country: None (occurrence: None)
  Receive Date: 20120718
  Receipt Date: 20120704
  Transmission Date: 20120928
  Serious: Yes (Hospitalization)
  Sender: FDA-Public Use
  Company Number: MY-1193160

PATIENT
  Age: 7 Year
  Sex: Female

DRUGS (1)
  1. VIGAMOX [Suspect]
     Indication: EYE DISCHARGE
     Dosage: 1 DF 6 X/DAY OS OPHTHALMIC
     Route: 047

REACTIONS (7)
  - CONDITION AGGRAVATED [None]
  - CONJUNCTIVAL DISORDER [None]
  - EYE ABSCESS [None]
  - CONJUNCTIVITIS [None]
  - STAPHYLOCOCCUS TEST POSITIVE [None]
  - VISUAL ACUITY REDUCED [None]
  - EYE DISCHARGE [None]
